FAERS Safety Report 4357582-8 (Version None)
Quarter: 2004Q2

REPORT INFORMATION
  Report Type: 
  Country: None (occurrence: None)
  Receive Date: 20040512
  Receipt Date: 20040512
  Transmission Date: 20050107
  Serious: No
  Sender: FDA-Public Use
  Company Number: None

PATIENT
  Age: 92 Year
  Sex: Female
  Weight: 48.1 kg

DRUGS (2)
  1. COUMADIN [Suspect]
     Indication: ATRIAL FIBRILLATION
     Dosage: 2 MG DAILY ORAL
     Route: 048
     Dates: start: 20040101, end: 20040508
  2. LEVAQUIN [Suspect]
     Indication: PNEUMONIA
     Dosage: 250 MG DAILY IV
     Route: 042
     Dates: start: 20040506, end: 20040511

REACTIONS (2)
  - DRUG INTERACTION [None]
  - INTERNATIONAL NORMALISED RATIO INCREASED [None]
